FAERS Safety Report 6628760-X (Version None)
Quarter: 2010Q1

REPORT INFORMATION
  Report Type: 
  Country: None (occurrence: None)
  Receive Date: 20100311
  Receipt Date: 20100308
  Transmission Date: 20100710
  Serious: Yes (Death)
  Sender: FDA-Public Use
  Company Number: JP-BAYER-200914858BYL

PATIENT
  Age: 74 Year
  Sex: Female
  Weight: 57 kg

DRUGS (9)
  1. NEXAVAR [Suspect]
     Indication: HEPATIC NEOPLASM MALIGNANT
     Dosage: UNIT DOSE: 200 MG
     Route: 048
     Dates: start: 20091120, end: 20091126
  2. NEXAVAR [Suspect]
     Dosage: UNIT DOSE: 200 MG
     Route: 048
     Dates: end: 20100125
  3. INFLUENZA HA VACCINE [Concomitant]
     Indication: ANTIVIRAL PROPHYLAXIS
     Route: 058
  4. THYRADIN S [Concomitant]
     Route: 048
  5. PRIMPERAN INJ [Concomitant]
     Route: 065
  6. TENORMIN [Concomitant]
     Route: 048
  7. ADALAT CC [Concomitant]
     Route: 048
  8. JUVELA [Concomitant]
     Route: 061
  9. ALDACTONE [Concomitant]
     Route: 048

REACTIONS (7)
  - BLOOD PRESSURE DECREASED [None]
  - DECREASED APPETITE [None]
  - DISSEMINATED INTRAVASCULAR COAGULATION [None]
  - INTERSTITIAL LUNG DISEASE [None]
  - LIVER DISORDER [None]
  - RESPIRATORY FAILURE [None]
  - URINE OUTPUT DECREASED [None]
